FAERS Safety Report 6898583-5 (Version None)
Quarter: 2010Q3

REPORT INFORMATION
  Report Type: 
  Country: None (occurrence: None)
  Receive Date: 20100802
  Receipt Date: 20071030
  Transmission Date: 20110219
  Serious: Yes (Other)
  Sender: FDA-Public Use
  Company Number: US-PFIZER INC-2007069752

PATIENT
  Age: 34 Year
  Sex: Male
  Weight: 137.9 kg

DRUGS (13)
  1. LYRICA [Suspect]
     Indication: NEURALGIA
     Route: 048
     Dates: start: 20070801, end: 20070801
  2. LIDODERM [Concomitant]
  3. BENZACLIN [Concomitant]
  4. CLONAZEPAM [Concomitant]
  5. LEVITRA [Concomitant]
  6. AXID [Concomitant]
  7. DEPAKOTE [Concomitant]
  8. LAMICTAL [Concomitant]
  9. METOPROLOL [Concomitant]
  10. SPIRIVA [Concomitant]
  11. COMBIVENT [Concomitant]
  12. BENICAR [Concomitant]
  13. CLONIDINE [Concomitant]

REACTIONS (2)
  - LIVER FUNCTION TEST ABNORMAL [None]
  - OEDEMA PERIPHERAL [None]
